FAERS Safety Report 8111616-3 (Version None)
Quarter: 2012Q1

REPORT INFORMATION
  Report Type: 
  Country: None (occurrence: None)
  Receive Date: 20120202
  Receipt Date: 20120202
  Transmission Date: 20120608
  Serious: Yes (Hospitalization)
  Sender: FDA-Public Use
  Company Number: None

PATIENT
  Sex: Male
  Weight: 72.6 kg

DRUGS (3)
  1. BEVACIZUMAB (RHUMAB VEGF) [Suspect]
     Dosage: 1095 MG
     Dates: end: 20120124
  2. IRINOTECAN HCL [Suspect]
     Dosage: 1032 MG
     Dates: end: 20120124
  3. FLUOROURACIL [Suspect]
     Dosage: 2295 MG
     Dates: end: 20120124

REACTIONS (2)
  - VENOUS THROMBOSIS [None]
  - VENOUS THROMBOSIS LIMB [None]
